FAERS Safety Report 17941532 (Version 1)
Quarter: 2020Q2

REPORT INFORMATION
  Report Type: Spontaneous
  Country: US (occurrence: US)
  Receive Date: 20200624
  Receipt Date: 20200624
  Transmission Date: 20200714
  Serious: Yes (Death)
  Sender: FDA-Public Use
  Company Number: None

PATIENT
  Age: 73 Year
  Sex: Male

DRUGS (16)
  1. LEVOTHYROXIN [Concomitant]
     Active Substance: LEVOTHYROXINE
  2. ESCITALOPRAM [Concomitant]
     Active Substance: ESCITALOPRAM OXALATE
  3. MIDODRINE [Concomitant]
     Active Substance: MIDODRINE
  4. OCTREOTIDE. [Concomitant]
     Active Substance: OCTREOTIDE
  5. ALLOPURINOL. [Concomitant]
     Active Substance: ALLOPURINOL
  6. CALCITRIOL. DILT-XR [Concomitant]
  7. FUROSEMIDE. [Concomitant]
     Active Substance: FUROSEMIDE
  8. ROSUVASTATIN. [Concomitant]
     Active Substance: ROSUVASTATIN
  9. LACTULOSE. [Concomitant]
     Active Substance: LACTULOSE
  10. WARFARIN [Concomitant]
     Active Substance: WARFARIN
  11. METOLAZONE. [Concomitant]
     Active Substance: METOLAZONE
  12. SPIRONOLACT [Concomitant]
     Active Substance: SPIRONOLACTONE
  13. POT CHLORIDE [Concomitant]
     Active Substance: POTASSIUM CHLORIDE
  14. TRAZODONE [Concomitant]
     Active Substance: TRAZODONE HYDROCHLORIDE
  15. TIMOLOL MAL [Concomitant]
  16. VYNDAQEL [Suspect]
     Active Substance: TAFAMIDIS MEGLUMINE
     Route: 048
     Dates: start: 20200101, end: 20200123

REACTIONS (1)
  - Death [None]

NARRATIVE: CASE EVENT DATE: 20200623
